FAERS Safety Report 13509832 (Version 4)
Quarter: 2020Q1

REPORT INFORMATION
  Report Type: Spontaneous
  Country: US (occurrence: US)
  Receive Date: 20170503
  Receipt Date: 20200228
  Transmission Date: 20200409
  Serious: No
  Sender: FDA-Public Use
  Company Number: US-SA-2017SA047022

PATIENT
  Age: 62 Year
  Sex: Female
  Weight: 47.6 kg

DRUGS (2)
  1. REPATHA [Concomitant]
     Active Substance: EVOLOCUMAB
  2. PRALUENT [Suspect]
     Active Substance: ALIROCUMAB
     Indication: TYPE V HYPERLIPIDAEMIA
     Dosage: 75 MG,QOW
     Route: 058
     Dates: start: 201608

REACTIONS (4)
  - Pruritus [Unknown]
  - Wrong product administered [Unknown]
  - Rash [Unknown]
  - Sinus disorder [Unknown]

NARRATIVE: CASE EVENT DATE: 202001
